FAERS Safety Report 9262513 (Version 3)
Quarter: 2013Q3

REPORT INFORMATION
  Report Type: Spontaneous
  Country: US (occurrence: US)
  Receive Date: 20130430
  Receipt Date: 20130814
  Transmission Date: 20140515
  Serious: Yes (Hospitalization, Other)
  Sender: FDA-Public Use
  Company Number: US-ROCHE-746526

PATIENT
  Age: 17 Year
  Sex: Female
  Weight: 58.1 kg

DRUGS (3)
  1. ACCUTANE [Suspect]
     Indication: ACNE CYSTIC
     Route: 065
     Dates: start: 19991006, end: 200002
  2. ACCUTANE [Suspect]
     Route: 065
     Dates: start: 20011129, end: 20020702
  3. ACCUTANE [Suspect]
     Route: 065
     Dates: start: 2002, end: 2003

REACTIONS (7)
  - Proctitis ulcerative [Unknown]
  - Lower gastrointestinal haemorrhage [Unknown]
  - Inflammatory bowel disease [Unknown]
  - Lip dry [Unknown]
  - Dry skin [Unknown]
  - Nasal dryness [Unknown]
  - Pruritus [Unknown]
